FAERS Safety Report 24531140 (Version 1)
Quarter: 2024Q4

REPORT INFORMATION
  Report Type: Spontaneous
  Country: IT (occurrence: IT)
  Receive Date: 20241022
  Receipt Date: 20241022
  Transmission Date: 20250115
  Serious: Yes (Hospitalization, Other)
  Sender: SANOFI AVENTIS
  Company Number: None

PATIENT
  Age: 76 Year
  Sex: Female
  Weight: 66 kg

DRUGS (6)
  1. CAPLACIZUMAB [Suspect]
     Active Substance: CAPLACIZUMAB
     Indication: Immune thrombocytopenia
     Dosage: UNK
     Route: 065
     Dates: start: 20240724, end: 20240731
  2. CAPLACIZUMAB [Suspect]
     Active Substance: CAPLACIZUMAB
     Indication: Immune thrombocytopenia
     Dosage: UNK
     Route: 065
     Dates: start: 20240724, end: 20240731
  3. CAPLACIZUMAB [Suspect]
     Active Substance: CAPLACIZUMAB
     Indication: Immune thrombocytopenia
     Dosage: UNK
     Route: 065
     Dates: start: 20240724, end: 20240731
  4. CAPLACIZUMAB [Suspect]
     Active Substance: CAPLACIZUMAB
     Indication: Immune thrombocytopenia
     Dosage: UNK
     Route: 065
     Dates: start: 20240724, end: 20240731
  5. ENOXAPARIN SODIUM [Suspect]
     Active Substance: ENOXAPARIN SODIUM
     Indication: Embolism venous
     Dosage: 4000 IU, QD
     Route: 058
     Dates: start: 20240728, end: 20240731
  6. ENOXAPARIN SODIUM [Suspect]
     Active Substance: ENOXAPARIN SODIUM
     Indication: Prophylaxis

REACTIONS (1)
  - Haemorrhagic pancreatic cyst [Recovering/Resolving]

NARRATIVE: CASE EVENT DATE: 20240731
